FAERS Safety Report 8941757 (Version 2)
Quarter: 2013Q2

REPORT INFORMATION
  Report Type: Spontaneous
  Country: JP (occurrence: JP)
  Receive Date: 20121203
  Receipt Date: 20130513
  Transmission Date: 20140414
  Serious: Yes (Death, Hospitalization, Other)
  Sender: FDA-Public Use
  Company Number: JP-ROCHE-1058627

PATIENT
  Age: 77 Year
  Sex: Female
  Weight: 45 kg

DRUGS (3)
  1. AVASTIN [Suspect]
     Indication: BREAST CANCER METASTATIC
     Route: 041
     Dates: start: 20111208, end: 20120119
  2. AVASTIN [Suspect]
     Indication: BREAST CANCER METASTATIC
  3. LOXONIN [Concomitant]
     Indication: PAIN
     Route: 048
     Dates: start: 20111031

REACTIONS (4)
  - Breast cancer metastatic [Fatal]
  - Large intestine perforation [Recovering/Resolving]
  - Melaena [Unknown]
  - Diverticulitis [Unknown]
